FAERS Safety Report 8312919-X (Version None)
Quarter: 2012Q2

REPORT INFORMATION
  Report Type: 
  Country: None (occurrence: None)
  Receive Date: 20120426
  Receipt Date: 20120419
  Transmission Date: 20120825
  Serious: Yes (Hospitalization)
  Sender: FDA-Public Use
  Company Number: US-BAYER-2011-085703

PATIENT
  Age: 32 Year
  Sex: Female
  Weight: 85 kg

DRUGS (17)
  1. LEXAPRO [Concomitant]
     Dosage: UNK
     Dates: start: 20060101, end: 20100101
  2. YAZ [Suspect]
     Indication: CONTRACEPTION
     Dosage: UNK
     Dates: start: 20080421
  3. YASMIN [Suspect]
     Dosage: UNK
     Dates: start: 20100305
  4. YAZ [Suspect]
     Indication: PREMENSTRUAL SYNDROME
     Dosage: UNK
     Dates: start: 20091030
  5. YAZ [Suspect]
     Dosage: UNK
     Dates: start: 20100108
  6. YAZ [Suspect]
     Dosage: UNK
     Dates: start: 20100126
  7. YASMIN [Suspect]
     Dosage: UNK
     Dates: start: 20091215
  8. YAZ [Suspect]
     Dosage: UNK
     Dates: start: 20091215
  9. YAZ [Suspect]
     Dosage: UNK
     Dates: start: 20100412
  10. YASMIN [Suspect]
     Indication: PREMENSTRUAL SYNDROME
     Dosage: UNK
     Dates: start: 20080421
  11. YAZ [Suspect]
     Dosage: UNK
     Dates: start: 20100305
  12. YASMIN [Suspect]
     Dosage: UNK
     Dates: start: 20091103
  13. YASMIN [Suspect]
     Dosage: UNK
     Dates: start: 20100108
  14. YASMIN [Suspect]
     Dosage: UNK
     Dates: start: 20100412
  15. YAZ [Suspect]
     Dosage: UNK
     Dates: start: 20091103
  16. YASMIN [Suspect]
     Dosage: UNK
     Dates: start: 20100126
  17. YASMIN [Suspect]
     Dosage: UNK
     Dates: start: 20091030

REACTIONS (4)
  - MENTAL DISORDER [None]
  - CHOLECYSTITIS ACUTE [None]
  - ABDOMINAL PAIN [None]
  - INJURY [None]
